FAERS Safety Report 12288035 (Version 1)
Quarter: 2016Q2

REPORT INFORMATION
  Report Type: Report from Study
  Country: DK (occurrence: DK)
  Receive Date: 20160420
  Receipt Date: 20160420
  Transmission Date: 20160815
  Serious: Yes (Other)
  Sender: FDA-Public Use
  Company Number: DK-FRESENIUS KABI-FK201601935

PATIENT
  Age: 59 Year
  Sex: Male

DRUGS (2)
  1. MEPIVACAINE [Suspect]
     Active Substance: MEPIVACAINE\MEPIVACAINE HYDROCHLORIDE
     Indication: LOCAL ANAESTHESIA
     Route: 053
  2. ROPIVACAINE (MANUFACTURER UNKNOWN) [Suspect]
     Active Substance: ROPIVACAINE
     Indication: LOCAL ANAESTHESIA
     Route: 053

REACTIONS (5)
  - Toxicity to various agents [Recovered/Resolved]
  - Seizure [Recovered/Resolved]
  - Tachycardia [Recovered/Resolved]
  - Agitation [Recovered/Resolved]
  - Dysarthria [Recovered/Resolved]
